FAERS Safety Report 6038843-3 (Version None)
Quarter: 2009Q1

REPORT INFORMATION
  Report Type: 
  Country: None (occurrence: None)
  Receive Date: 20090114
  Receipt Date: 20090114
  Transmission Date: 20090719
  Serious: No
  Sender: FDA-Public Use
  Company Number: None

PATIENT
  Sex: Female
  Weight: 50.3493 kg

DRUGS (2)
  1. RECLAST [Suspect]
     Indication: OSTEOPENIA
     Dosage: 5 MG 1 DOSE IV DRIP
     Route: 041
     Dates: start: 20081008, end: 20081008
  2. METHOTREXATE [Concomitant]

REACTIONS (1)
  - OSTEONECROSIS [None]
